FAERS Safety Report 12220712 (Version 1)
Quarter: 2016Q1

REPORT INFORMATION
  Report Type: Spontaneous
  Country: US (occurrence: None)
  Receive Date: 20160329
  Receipt Date: 20160329
  Transmission Date: 20160526
  Serious: Yes (Other)
  Sender: FDA-Public Use
  Company Number: None

PATIENT
  Age: 78 Year
  Sex: Female
  Weight: 66.68 kg

DRUGS (13)
  1. SYNTHROID [Concomitant]
     Active Substance: LEVOTHYROXINE SODIUM
  2. OSTEOVEGAN [Concomitant]
  3. OSTEO BIO-FLEX [Concomitant]
  4. ALPRAZOLAMESCITALOPRAM [Concomitant]
  5. LINZESS [Concomitant]
     Active Substance: LINACLOTIDE
  6. LEVAQUIN [Suspect]
     Active Substance: LEVOFLOXACIN
     Indication: BACTERIAL INFECTION
     Route: 048
     Dates: start: 20160317, end: 20160320
  7. NASOCORT [Concomitant]
     Active Substance: BUDESONIDE
  8. ZYRTEC [Concomitant]
     Active Substance: CETIRIZINE HYDROCHLORIDE
  9. CLINDAMYCIN [Concomitant]
     Active Substance: CLINDAMYCIN\CLINDAMYCIN PHOSPHATE
  10. PROBIOTIC (METAGENICS--ULTRA FLORA BALANCE) [Concomitant]
  11. PRESERVISION AREDS 2 [Concomitant]
  12. SINUS RINSE [Concomitant]
  13. TRAZODONE [Concomitant]
     Active Substance: TRAZODONE HYDROCHLORIDE

REACTIONS (6)
  - Neck pain [None]
  - Feeling jittery [None]
  - Abdominal pain [None]
  - Insomnia [None]
  - Headache [None]
  - Musculoskeletal pain [None]

NARRATIVE: CASE EVENT DATE: 20160318
